FAERS Safety Report 10648909 (Version 1)
Quarter: 2014Q4

REPORT INFORMATION
  Report Type: Spontaneous
  Country: FI (occurrence: None)
  Receive Date: 20141210
  Receipt Date: 20141210
  Transmission Date: 20150529
  Serious: Yes (Hospitalization)
  Sender: FDA-Public Use
  Company Number: 201410IM007112

PATIENT
  Sex: Male

DRUGS (1)
  1. ESBRIET [Suspect]
     Active Substance: PIRFENIDONE
     Indication: IDIOPATHIC PULMONARY FIBROSIS
     Route: 048
     Dates: end: 20130819

REACTIONS (1)
  - Idiopathic pulmonary fibrosis [None]

NARRATIVE: CASE EVENT DATE: 201408
